FAERS Safety Report 4982526-5 (Version None)
Quarter: 2006Q2

REPORT INFORMATION
  Report Type: 
  Country: None (occurrence: None)
  Receive Date: 20060425
  Receipt Date: 20060418
  Transmission Date: 20061013
  Serious: Yes (Other)
  Sender: FDA-Public Use
  Company Number: PHEH2006US05144

PATIENT
  Age: 63 Year
  Sex: Male

DRUGS (5)
  1. DIOVAN [Suspect]
     Indication: HYPERTENSION
     Dosage: 160 MG, QD
     Route: 048
     Dates: start: 20010101
  2. ZETIA [Concomitant]
  3. ZOCOR [Concomitant]
  4. LIPITOR [Concomitant]
  5. FLOMAX [Concomitant]

REACTIONS (2)
  - DIABETES MELLITUS [None]
  - PROTEIN URINE PRESENT [None]
